FAERS Safety Report 23841400 (Version 3)
Quarter: 2024Q2

REPORT INFORMATION
  Report Type: Other
  Country: US (occurrence: None)
  Receive Date: 20240510
  Receipt Date: 20240605
  Transmission Date: 20240716
  Serious: Yes (Hospitalization, Other)
  Sender: FDA-Public Use
  Company Number: US-ROCHE-3528962

PATIENT
  Sex: Female

DRUGS (1)
  1. OCREVUS [Suspect]
     Active Substance: OCRELIZUMAB
     Indication: Relapsing-remitting multiple sclerosis
     Dosage: UNKNOWN
     Route: 042

REACTIONS (4)
  - Urinary tract infection [Recovered/Resolved]
  - Cystitis [Unknown]
  - Device related infection [Unknown]
  - Sepsis [Unknown]

NARRATIVE: CASE EVENT DATE: 20230501
